FAERS Safety Report 13652326 (Version 1)
Quarter: 2017Q2

REPORT INFORMATION
  Report Type: Spontaneous
  Country: CA (occurrence: CA)
  Receive Date: 20170614
  Receipt Date: 20170614
  Transmission Date: 20170830
  Serious: Yes (Hospitalization)
  Sender: FDA-Public Use
  Company Number: CA-TEVA-777845ACC

PATIENT
  Sex: Female

DRUGS (1)
  1. TEVA-PROGESTERONE [Suspect]
     Active Substance: PROGESTERONE
     Indication: HOT FLUSH
     Dosage: 200 MILLIGRAM DAILY;
     Route: 048

REACTIONS (2)
  - Renal stone removal [Recovered/Resolved]
  - Nephrolithiasis [Recovered/Resolved]
